FAERS Safety Report 4326658-3 (Version None)
Quarter: 2004Q1

REPORT INFORMATION
  Report Type: 
  Country: None (occurrence: None)
  Receive Date: 20040329
  Receipt Date: 20040329
  Transmission Date: 20041129
  Serious: Yes (Other)
  Sender: FDA-Public Use
  Company Number: None

PATIENT
  Age: 50 Year
  Sex: Male
  Weight: 68.0396 kg

DRUGS (1)
  1. ZICAM NASAL GELL 2 X MATRIX [Suspect]
     Indication: NASOPHARYNGITIS
     Dosage: ONCE 4 HOURS NASAL
     Route: 045
     Dates: start: 20030107, end: 20030110

REACTIONS (1)
  - ANOSMIA [None]
